FAERS Safety Report 9457420 (Version 1)
Quarter: 2013Q3

REPORT INFORMATION
  Report Type: Spontaneous
  Country: FR (occurrence: None)
  Receive Date: 20130812
  Receipt Date: 20130812
  Transmission Date: 20140515
  Serious: Yes (Hospitalization)
  Sender: FDA-Public Use
  Company Number: 2013000190

PATIENT
  Age: 75 Year
  Sex: Male

DRUGS (7)
  1. ACEON (PERINDOPRIL ERBUMINE) TABLET [Suspect]
     Route: 048
     Dates: end: 20130307
  2. TEMERIT [Suspect]
     Route: 048
     Dates: end: 20130307
  3. XATRAL [Suspect]
     Route: 048
     Dates: end: 20130311
  4. SEROPLEX [Suspect]
     Indication: PRODUCT USED FOR UNKNOWN INDICATION
     Route: 048
  5. PERINDOPRIL ARROW (PERINDOPRIL) [Concomitant]
  6. KARDEGIC (ACETYLSALICYLATE LYSINE) [Concomitant]
  7. TAHOR (ATORVASTATIN CALCIUM) [Concomitant]

REACTIONS (6)
  - Loss of consciousness [None]
  - Malaise [None]
  - Head injury [None]
  - Fall [None]
  - Orthostatic hypotension [None]
  - Cardiomegaly [None]
